FAERS Safety Report 7897366-7 (Version None)
Quarter: 2011Q4

REPORT INFORMATION
  Report Type: 
  Country: None (occurrence: None)
  Receive Date: 20111107
  Receipt Date: 20111026
  Transmission Date: 20120403
  Serious: Yes (Death, Other)
  Sender: FDA-Public Use
  Company Number: DE-CUBIST-2010S1001358

PATIENT
  Age: 76 Year
  Sex: Male
  Weight: 80 kg

DRUGS (11)
  1. CUBICIN [Suspect]
     Indication: WOUND INFECTION STAPHYLOCOCCAL
     Route: 042
  2. LINEZOLID [Concomitant]
     Indication: PRODUCT USED FOR UNKNOWN INDICATION
  3. CUBICIN [Suspect]
     Indication: ABSCESS NECK
     Route: 042
  4. CUBICIN [Suspect]
     Route: 042
     Dates: start: 20100106, end: 20100111
  5. RIFAMPIN [Concomitant]
     Indication: PRODUCT USED FOR UNKNOWN INDICATION
  6. CUBICIN [Suspect]
     Route: 042
     Dates: start: 20100106, end: 20100111
  7. CUBICIN [Suspect]
     Route: 042
     Dates: start: 20100106, end: 20100111
  8. TOBRAMYCIN [Concomitant]
     Indication: PRODUCT USED FOR UNKNOWN INDICATION
  9. CUBICIN [Suspect]
     Indication: SOFT TISSUE INFECTION
     Route: 042
  10. CUBICIN [Suspect]
     Route: 042
     Dates: start: 20100106, end: 20100111
  11. CUBICIN [Suspect]
     Indication: BACTERAEMIA
     Route: 042

REACTIONS (2)
  - STAPHYLOCOCCAL SEPSIS [None]
  - DRUG INEFFECTIVE [None]
